FAERS Safety Report 9206174 (Version 1)
Quarter: 2013Q2

REPORT INFORMATION
  Report Type: Spontaneous
  Country: SE (occurrence: None)
  Receive Date: 20130401
  Receipt Date: 20130401
  Transmission Date: 20140414
  Serious: Yes (Hospitalization)
  Sender: FDA-Public Use
  Company Number: IPC201303-000093

PATIENT
  Age: 55 Year
  Sex: Female

DRUGS (3)
  1. LOSARTAN POTASSIUM AND HYDROCHLOROTHIAZIDE TABLETS [Suspect]
     Route: 048
  2. PREDNISOLONE [Concomitant]
  3. TRAVEGYL [Concomitant]

REACTIONS (4)
  - Arteriospasm coronary [None]
  - Blood pressure systolic decreased [None]
  - Kounis syndrome [None]
  - Ejection fraction decreased [None]
